FAERS Safety Report 4767079-9 (Version None)
Quarter: 2005Q3

REPORT INFORMATION
  Report Type: 
  Country: None (occurrence: None)
  Receive Date: 20050908
  Receipt Date: 20050829
  Transmission Date: 20060218
  Serious: Yes (Death, Life-Threatening, Hospitalization, Other)
  Sender: FDA-Public Use
  Company Number: 2005043166

PATIENT
  Age: 75 Year
  Sex: Male
  Weight: 76 kg

DRUGS (1)
  1. SORTIS (ATORVASTATIN) [Suspect]
     Indication: HYPERLIPIDAEMIA
     Dosage: 20 MG (1 IN 1 D), ORAL
     Route: 048
     Dates: start: 20010101

REACTIONS (19)
  - ANAEMIA [None]
  - ASTHENIA [None]
  - BIOPSY KIDNEY ABNORMAL [None]
  - BONE MARROW DISORDER [None]
  - BONE MARROW TUMOUR CELL INFILTRATION [None]
  - CLEAR CELL CARCINOMA OF THE KIDNEY [None]
  - DIALYSIS [None]
  - HYPERKALAEMIA [None]
  - MYOGLOBIN BLOOD INCREASED [None]
  - NAUSEA [None]
  - NEOPLASM RECURRENCE [None]
  - PLASMACYTOMA [None]
  - PSOAS ABSCESS [None]
  - PYELONEPHRITIS CHRONIC [None]
  - RENAL DISORDER [None]
  - RENAL FAILURE [None]
  - RENAL FAILURE ACUTE [None]
  - THERAPY NON-RESPONDER [None]
  - VOMITING [None]
